FAERS Safety Report 15578361 (Version 1)
Quarter: 2018Q4

REPORT INFORMATION
  Report Type: Spontaneous
  Country: US (occurrence: US)
  Receive Date: 20181101
  Receipt Date: 20181101
  Transmission Date: 20190205
  Serious: Yes (Life-Threatening, Hospitalization, Disabling)
  Sender: FDA-Public Use
  Company Number: None

PATIENT
  Age: 38 Year
  Sex: Male
  Weight: 110.25 kg

DRUGS (5)
  1. GUANFACINE HCL ER 4MG [Suspect]
     Active Substance: GUANFACINE HYDROCHLORIDE
     Indication: ATTENTION DEFICIT/HYPERACTIVITY DISORDER
     Dosage: ?          QUANTITY:30 TABLET(S);?
     Route: 048
     Dates: start: 20171015, end: 20181019
  2. SUMATRIPTAN. [Concomitant]
     Active Substance: SUMATRIPTAN
  3. CARVODAL [Concomitant]
  4. ADDERALL [Concomitant]
     Active Substance: AMPHETAMINE ASPARTATE\AMPHETAMINE SULFATE\DEXTROAMPHETAMINE SACCHARATE\DEXTROAMPHETAMINE SULFATE
  5. NUEDEXTA [Concomitant]
     Active Substance: DEXTROMETHORPHAN HYDROBROMIDE\QUINIDINE SULFATE

REACTIONS (15)
  - Loss of employment [None]
  - Post-traumatic stress disorder [None]
  - Depression [None]
  - Anxiety [None]
  - Suicide attempt [None]
  - Muscle twitching [None]
  - Agitation [None]
  - Restlessness [None]
  - Hyperhidrosis [None]
  - Serotonin syndrome [None]
  - Blood pressure increased [None]
  - Major depression [None]
  - Bipolar disorder [None]
  - Confusional state [None]
  - Oppositional defiant disorder [None]

NARRATIVE: CASE EVENT DATE: 20180720
